FAERS Safety Report 4662203-0 (Version None)
Quarter: 2005Q2

REPORT INFORMATION
  Report Type: 
  Country: None (occurrence: None)
  Receive Date: 20050516
  Receipt Date: 20050422
  Transmission Date: 20051028
  Serious: Yes (Hospitalization, Other)
  Sender: FDA-Public Use
  Company Number: PHRM2005FR01355

PATIENT
  Age: 62 Year
  Sex: Female
  Weight: 40 kg

DRUGS (7)
  1. NISISCO [Suspect]
     Dosage: 1 DF, QD
     Route: 048
  2. GLUCOPHAGE [Suspect]
     Indication: DIABETES MELLITUS NON-INSULIN-DEPENDENT
     Dosage: 1 G, QD
     Route: 048
  3. DIAMICRON [Suspect]
     Indication: DIABETES MELLITUS NON-INSULIN-DEPENDENT
     Dosage: 4 DF, QD
     Route: 048
  4. ROCEPHIN [Suspect]
     Indication: UPPER RESPIRATORY TRACT INFECTION
     Dosage: 1 G, QD
     Route: 030
     Dates: start: 20050101
  5. ICAZ [Suspect]
     Indication: HYPERTENSION
     Dosage: 5 MG, QD
     Route: 048
  6. LESCOL [Concomitant]
     Indication: DYSLIPIDAEMIA
     Route: 048
  7. PROFENID [Suspect]
     Indication: INFECTION
     Dosage: 100 MG, QD
     Route: 030
     Dates: start: 20050127, end: 20050129

REACTIONS (15)
  - ABDOMINAL PAIN UPPER [None]
  - BLOOD CREATININE INCREASED [None]
  - BLOOD LACTIC ACID INCREASED [None]
  - BLOOD PH DECREASED [None]
  - DECREASED APPETITE [None]
  - GASTRIC ULCER PERFORATION [None]
  - GASTRIC ULCER SURGERY [None]
  - HAEMODIALYSIS [None]
  - HYPOGLYCAEMIA [None]
  - INFECTION [None]
  - LACTIC ACIDOSIS [None]
  - LOSS OF CONSCIOUSNESS [None]
  - PHARYNGITIS [None]
  - RENAL FAILURE ACUTE [None]
  - TOOTH DISORDER [None]
